FAERS Safety Report 7619300-7 (Version None)
Quarter: 2011Q3

REPORT INFORMATION
  Report Type: 
  Country: None (occurrence: None)
  Receive Date: 20110718
  Receipt Date: 20110714
  Transmission Date: 20111222
  Serious: No
  Sender: FDA-Public Use
  Company Number: US-B.I. PHARMACEUTICALS,INC./RIDGEFIELD-2011-BP-15302BP

PATIENT
  Sex: Female
  Weight: 82.55 kg

DRUGS (7)
  1. LEVEMIR [Concomitant]
     Dosage: 20 U
  2. COZAAR [Concomitant]
  3. SIMVASTATIN [Concomitant]
  4. PRADAXA [Suspect]
     Indication: ATRIAL FIBRILLATION
  5. PRADAXA [Suspect]
     Indication: ANTICOAGULANT THERAPY
     Dosage: 300 MG
     Route: 048
     Dates: start: 20110419
  6. FENOFIBRATE [Concomitant]
  7. DILTIAZEM [Concomitant]

REACTIONS (2)
  - BLOOD URINE PRESENT [None]
  - POLLAKIURIA [None]
